FAERS Safety Report 13011652 (Version 2)
Quarter: 2017Q1

REPORT INFORMATION
  Report Type: Spontaneous
  Country: US (occurrence: US)
  Receive Date: 20161209
  Receipt Date: 20170302
  Transmission Date: 20170428
  Serious: No
  Sender: FDA-Public Use
  Company Number: US-JNJFOC-20161200245

PATIENT
  Age: 90 Year
  Sex: Male
  Weight: 79.38 kg

DRUGS (2)
  1. IMODIUM A-D [Suspect]
     Active Substance: LOPERAMIDE HYDROCHLORIDE
     Indication: DIARRHOEA
     Dosage: ONE CAPTLET FOR FIRST LOOSE STOOL AND ONE AFTER ANOTHER LOOSE STOOL
     Route: 048
     Dates: start: 20161129, end: 20161129
  2. IMODIUM A-D [Suspect]
     Active Substance: LOPERAMIDE HYDROCHLORIDE
     Route: 048

REACTIONS (1)
  - Incorrect dose administered [Unknown]

NARRATIVE: CASE EVENT DATE: 20161129
